FAERS Safety Report 11617614 (Version 11)
Quarter: 2016Q3

REPORT INFORMATION
  Report Type: Report from Study
  Country: CA (occurrence: CA)
  Receive Date: 20151009
  Receipt Date: 20160713
  Transmission Date: 20161109
  Serious: Yes (Hospitalization, Other)
  Sender: FDA-Public Use
  Company Number: CA-ABBVIE-15K-028-1475259-00

PATIENT
  Age: 28 Year
  Sex: Male
  Weight: 46 kg

DRUGS (5)
  1. DILANTIN [Suspect]
     Active Substance: PHENYTOIN
     Indication: SEIZURE
     Route: 065
  2. HUMIRA [Suspect]
     Active Substance: ADALIMUMAB
     Indication: CROHN^S DISEASE
     Route: 058
     Dates: start: 20080101, end: 20150930
  3. DEMEROL [Concomitant]
     Active Substance: MEPERIDINE HYDROCHLORIDE
     Indication: PRODUCT USED FOR UNKNOWN INDICATION
  4. HUMIRA [Suspect]
     Active Substance: ADALIMUMAB
     Route: 058
     Dates: start: 20151029, end: 20160107
  5. HUMIRA [Suspect]
     Active Substance: ADALIMUMAB
     Route: 058
     Dates: start: 20160112

REACTIONS (16)
  - Memory impairment [Not Recovered/Not Resolved]
  - Seizure [Not Recovered/Not Resolved]
  - Seizure [Recovered/Resolved]
  - Seizure [Recovered/Resolved]
  - Drug level decreased [Unknown]
  - Tongue injury [Not Recovered/Not Resolved]
  - Infection [Not Recovered/Not Resolved]
  - Drug dose omission [Unknown]
  - Head injury [Unknown]
  - Seizure [Recovered/Resolved]
  - Central nervous system lesion [Unknown]
  - Brain neoplasm [Unknown]
  - Vomiting [Not Recovered/Not Resolved]
  - Decreased appetite [Not Recovered/Not Resolved]
  - Epilepsy [Recovered/Resolved]
  - Dizziness [Not Recovered/Not Resolved]

NARRATIVE: CASE EVENT DATE: 2010
